FAERS Safety Report 5426365-X (Version None)
Quarter: 2007Q3

REPORT INFORMATION
  Report Type: 
  Country: None (occurrence: None)
  Receive Date: 20070827
  Receipt Date: 20070815
  Transmission Date: 20080115
  Serious: Yes (Hospitalization, Disabling, Other)
  Sender: FDA-Public Use
  Company Number: US-PFIZER INC-2007044716

PATIENT
  Sex: Male
  Weight: 210.9 kg

DRUGS (1)
  1. CELEBREX [Suspect]
     Indication: INTERVERTEBRAL DISC DISORDER

REACTIONS (8)
  - CARDIAC FAILURE CONGESTIVE [None]
  - CARDIOMYOPATHY [None]
  - CARDIOVASCULAR DISORDER [None]
  - CHEST PAIN [None]
  - EPISTAXIS [None]
  - HYPERTENSION [None]
  - MOUTH HAEMORRHAGE [None]
  - RECTAL HAEMORRHAGE [None]
